FAERS Safety Report 4927060-3 (Version None)
Quarter: 2006Q1

REPORT INFORMATION
  Report Type: 
  Country: None (occurrence: None)
  Receive Date: 20060228
  Receipt Date: 20051014
  Transmission Date: 20060701
  Serious: No
  Sender: FDA-Public Use
  Company Number: US-GLAXOSMITHKLINE-A0578291A

PATIENT
  Sex: Female

DRUGS (4)
  1. LAMICTAL [Suspect]
     Dosage: 300MG PER DAY
     Route: 048
  2. KLONOPIN [Concomitant]
  3. MOBIC [Concomitant]
  4. ZANTAC [Concomitant]

REACTIONS (7)
  - ALOPECIA [None]
  - ANGER [None]
  - CONFUSIONAL STATE [None]
  - DISTURBANCE IN ATTENTION [None]
  - IMPAIRED DRIVING ABILITY [None]
  - INSOMNIA [None]
  - MEMORY IMPAIRMENT [None]
